FAERS Safety Report 19118591 (Version 1)
Quarter: 2021Q2

REPORT INFORMATION
  Report Type: Spontaneous
  Country: FR (occurrence: FR)
  Receive Date: 20210409
  Receipt Date: 20210409
  Transmission Date: 20210717
  Serious: Yes (Other)
  Sender: FDA-Public Use
  Company Number: FR-ORGANON-O2104FRA000453

PATIENT
  Age: 17 Year
  Sex: Female
  Weight: 51 kg

DRUGS (4)
  1. NERISONE [Suspect]
     Active Substance: DIFLUCORTOLONE VALERATE
     Indication: DERMATITIS ATOPIC
     Dosage: UNK
     Route: 003
     Dates: start: 1997, end: 2013
  2. DIPROSONE [Suspect]
     Active Substance: BETAMETHASONE DIPROPIONATE
     Indication: DERMATITIS ATOPIC
     Dosage: UNK
     Route: 003
     Dates: start: 2011, end: 2020
  3. STERDEX [Suspect]
     Active Substance: DEXAMETHASONE\OXYTETRACYCLINE
     Indication: PRODUCT USED FOR UNKNOWN INDICATION
     Dosage: UNK
     Route: 047
     Dates: start: 2014, end: 2020
  4. DAIVOBET [Suspect]
     Active Substance: BETAMETHASONE DIPROPIONATE\CALCIPOTRIENE
     Indication: PSORIASIS
     Dosage: UNK, (STRENGTH: 50 MICROGRAMMES/0,5 MG/G)
     Route: 003
     Dates: start: 2015, end: 2019

REACTIONS (1)
  - Rebound effect [Recovering/Resolving]

NARRATIVE: CASE EVENT DATE: 20150101
